FAERS Safety Report 10579998 (Version 1)
Quarter: 2014Q4

REPORT INFORMATION
  Report Type: Spontaneous
  Country: US (occurrence: US)
  Receive Date: 20141112
  Receipt Date: 20141112
  Transmission Date: 20150529
  Serious: Yes (Hospitalization, Other)
  Sender: FDA-Public Use
  Company Number: US-PFIZER INC-2014310485

PATIENT
  Age: 82 Year
  Sex: Male
  Weight: 84 kg

DRUGS (8)
  1. CELEBREX [Suspect]
     Active Substance: CELECOXIB
     Indication: ARTHRALGIA
     Dosage: 200 MG, ONE IN THE MORNING CAPSULE
     Dates: start: 20141110
  2. CELEBREX [Suspect]
     Active Substance: CELECOXIB
     Indication: ARTHRALGIA
  3. METFORMIN [Concomitant]
     Active Substance: METFORMIN HYDROCHLORIDE
     Indication: DIABETES MELLITUS
     Dosage: UNK
  4. LASIX [Concomitant]
     Active Substance: FUROSEMIDE
     Dosage: UNK
  5. HUMALOG [Concomitant]
     Active Substance: INSULIN LISPRO
     Indication: DIABETES MELLITUS
     Dosage: UNK
  6. CELEBREX [Suspect]
     Active Substance: CELECOXIB
     Indication: MUSCULOSKELETAL PAIN
     Dosage: UNK, ONE IN AM AND ONE AT NIGHT
  7. LANTUS [Concomitant]
     Active Substance: INSULIN GLARGINE
     Indication: DIABETES MELLITUS
     Dosage: UNK
  8. CELEBREX [Suspect]
     Active Substance: CELECOXIB
     Indication: ARTHRITIS

REACTIONS (18)
  - Gastric perforation [Unknown]
  - Hypoaesthesia [Unknown]
  - Respiratory disorder [Unknown]
  - Hypoaesthesia oral [Unknown]
  - Fall [Unknown]
  - Hypertension [Unknown]
  - Blood cholesterol increased [Unknown]
  - Aortic occlusion [Unknown]
  - Upper limb fracture [Unknown]
  - Gastrointestinal haemorrhage [Unknown]
  - Hearing impaired [Unknown]
  - Cerebrovascular accident [Unknown]
  - Oropharyngeal pain [Unknown]
  - Dyspepsia [Unknown]
  - Feeling abnormal [Unknown]
  - Mobility decreased [Unknown]
  - Cervical vertebral fracture [Unknown]
  - Diabetic complication [Unknown]
